FAERS Safety Report 5920412-4 (Version None)
Quarter: 2008Q4

REPORT INFORMATION
  Report Type: 
  Country: None (occurrence: None)
  Receive Date: 20081016
  Receipt Date: 20081002
  Transmission Date: 20090506
  Serious: Yes (Hospitalization)
  Sender: FDA-Public Use
  Company Number: JP-ABBOTT-08P-087-0475193-00

PATIENT
  Age: 81 Year
  Sex: Male

DRUGS (3)
  1. LEUPROLIDE ACETATE [Suspect]
     Indication: PROSTATE CANCER STAGE IV
     Dates: start: 20060208, end: 20060301
  2. LEUPROLIDE ACETATE [Suspect]
     Route: 058
     Dates: start: 20060322, end: 20070314
  3. TS 1 [Concomitant]
     Indication: GASTRIC CANCER
     Route: 048

REACTIONS (1)
  - GASTRIC CANCER [None]
